FAERS Safety Report 23611427 (Version 1)
Quarter: 2024Q1

REPORT INFORMATION
  Report Type: Spontaneous
  Country: AU (occurrence: AU)
  Receive Date: 20240308
  Receipt Date: 20240308
  Transmission Date: 20240409
  Serious: Yes (Hospitalization, Other)
  Sender: FDA-Public Use
  Company Number: AU-BoehringerIngelheim-2024-BI-012743

PATIENT
  Age: 95 Year
  Sex: Female

DRUGS (1)
  1. OFEV [Suspect]
     Active Substance: NINTEDANIB
     Indication: Interstitial lung disease
     Route: 048

REACTIONS (3)
  - Gastric perforation [Recovering/Resolving]
  - Hypotension [Unknown]
  - Shock [Unknown]

NARRATIVE: CASE EVENT DATE: 20231214
